FAERS Safety Report 6275317-9 (Version None)
Quarter: 2009Q3

REPORT INFORMATION
  Report Type: 
  Country: None (occurrence: None)
  Receive Date: 20090721
  Receipt Date: 20090713
  Transmission Date: 20100115
  Serious: Yes (Other)
  Sender: FDA-Public Use
  Company Number: B0575276A

PATIENT
  Sex: Male

DRUGS (4)
  1. RELENZA [Suspect]
     Indication: INFLUENZA
     Dosage: 10MG TWICE PER DAY
     Route: 055
     Dates: start: 20090514, end: 20090514
  2. POLARAMINE [Suspect]
     Dosage: 2MG TWICE PER DAY
     Route: 048
     Dates: start: 20090514, end: 20090514
  3. TRANSAMIN [Suspect]
     Indication: OROPHARYNGEAL PAIN
     Dosage: 250MG TWICE PER DAY
     Route: 048
     Dates: start: 20090514, end: 20090514
  4. IBUPROFEN [Concomitant]
     Dosage: 200MG PER DAY
     Route: 048
     Dates: start: 20090514, end: 20090514

REACTIONS (2)
  - ALTERED STATE OF CONSCIOUSNESS [None]
  - TONIC CONVULSION [None]
